FAERS Safety Report 25314427 (Version 1)
Quarter: 2025Q2

REPORT INFORMATION
  Report Type: Spontaneous
  Country: DE (occurrence: DE)
  Receive Date: 20250514
  Receipt Date: 20250514
  Transmission Date: 20250717
  Serious: Yes (Other)
  Sender: MYLAN
  Company Number: DE-LESVI-2025001893

PATIENT
  Age: 81 Year
  Sex: Female

DRUGS (32)
  1. SERTRALINE [Suspect]
     Active Substance: SERTRALINE HYDROCHLORIDE
     Indication: Product used for unknown indication
  2. SERTRALINE [Suspect]
     Active Substance: SERTRALINE HYDROCHLORIDE
     Route: 065
  3. SERTRALINE [Suspect]
     Active Substance: SERTRALINE HYDROCHLORIDE
     Route: 065
  4. SERTRALINE [Suspect]
     Active Substance: SERTRALINE HYDROCHLORIDE
  5. MIRTAZAPINE [Suspect]
     Active Substance: MIRTAZAPINE
     Indication: Product used for unknown indication
  6. MIRTAZAPINE [Suspect]
     Active Substance: MIRTAZAPINE
     Route: 065
  7. MIRTAZAPINE [Suspect]
     Active Substance: MIRTAZAPINE
     Route: 065
  8. MIRTAZAPINE [Suspect]
     Active Substance: MIRTAZAPINE
  9. TROSPIUM [Suspect]
     Active Substance: TROSPIUM
     Indication: Product used for unknown indication
  10. TROSPIUM [Suspect]
     Active Substance: TROSPIUM
     Route: 065
  11. TROSPIUM [Suspect]
     Active Substance: TROSPIUM
     Route: 065
  12. TROSPIUM [Suspect]
     Active Substance: TROSPIUM
  13. CINNARIZINE\DIMENHYDRINATE [Suspect]
     Active Substance: CINNARIZINE\DIMENHYDRINATE
     Indication: Dizziness
  14. CINNARIZINE\DIMENHYDRINATE [Suspect]
     Active Substance: CINNARIZINE\DIMENHYDRINATE
     Route: 065
  15. CINNARIZINE\DIMENHYDRINATE [Suspect]
     Active Substance: CINNARIZINE\DIMENHYDRINATE
     Route: 065
  16. CINNARIZINE\DIMENHYDRINATE [Suspect]
     Active Substance: CINNARIZINE\DIMENHYDRINATE
  17. PROMETHAZINE [Suspect]
     Active Substance: PROMETHAZINE HYDROCHLORIDE
     Indication: Product used for unknown indication
  18. PROMETHAZINE [Suspect]
     Active Substance: PROMETHAZINE HYDROCHLORIDE
     Route: 065
  19. PROMETHAZINE [Suspect]
     Active Substance: PROMETHAZINE HYDROCHLORIDE
     Route: 065
  20. PROMETHAZINE [Suspect]
     Active Substance: PROMETHAZINE HYDROCHLORIDE
  21. MELPERONE [Suspect]
     Active Substance: MELPERONE
     Indication: Sleep disorder
  22. MELPERONE [Suspect]
     Active Substance: MELPERONE
     Route: 065
  23. MELPERONE [Suspect]
     Active Substance: MELPERONE
     Route: 065
  24. MELPERONE [Suspect]
     Active Substance: MELPERONE
  25. LEVETIRACETAM [Suspect]
     Active Substance: LEVETIRACETAM
     Indication: Epilepsy
  26. LEVETIRACETAM [Suspect]
     Active Substance: LEVETIRACETAM
     Route: 065
  27. LEVETIRACETAM [Suspect]
     Active Substance: LEVETIRACETAM
     Route: 065
  28. LEVETIRACETAM [Suspect]
     Active Substance: LEVETIRACETAM
  29. OXYBUTYNIN [Suspect]
     Active Substance: OXYBUTYNIN
     Indication: Micturition urgency
     Dosage: 3.9 MILLIGRAM, QD (24 HOURS/1-0-0-0 PIECES)
  30. OXYBUTYNIN [Suspect]
     Active Substance: OXYBUTYNIN
     Dosage: 3.9 MILLIGRAM, QD (24 HOURS/1-0-0-0 PIECES)
     Route: 065
  31. OXYBUTYNIN [Suspect]
     Active Substance: OXYBUTYNIN
     Dosage: 3.9 MILLIGRAM, QD (24 HOURS/1-0-0-0 PIECES)
     Route: 065
  32. OXYBUTYNIN [Suspect]
     Active Substance: OXYBUTYNIN
     Dosage: 3.9 MILLIGRAM, QD (24 HOURS/1-0-0-0 PIECES)

REACTIONS (7)
  - Epilepsy [Unknown]
  - Sleep disorder [Recovered/Resolved]
  - Anticholinergic effect [Unknown]
  - Micturition urgency [Unknown]
  - Restlessness [Unknown]
  - Dizziness [Unknown]
  - Off label use [Unknown]
